FAERS Safety Report 4984715-2 (Version None)
Quarter: 2006Q2

REPORT INFORMATION
  Report Type: 
  Country: None (occurrence: None)
  Receive Date: 20060427
  Receipt Date: 20050802
  Transmission Date: 20061013
  Serious: Yes (Hospitalization)
  Sender: FDA-Public Use
  Company Number: NO-MERCK-0508NOR00001

PATIENT
  Age: 57 Year
  Sex: Male

DRUGS (13)
  1. CARISOPRODOL [Concomitant]
     Route: 065
  2. SUMATRIPTAN [Concomitant]
     Route: 055
  3. NAPROXEN [Concomitant]
     Route: 048
     Dates: start: 20020501, end: 20030501
  4. CELECOXIB [Concomitant]
     Route: 065
     Dates: start: 20031101, end: 20041001
  5. VIOXX [Suspect]
     Indication: ANKYLOSING SPONDYLITIS
     Route: 048
     Dates: start: 20010101, end: 20020501
  6. VIOXX [Suspect]
     Route: 048
     Dates: start: 20030501, end: 20031101
  7. DESLORATADINE [Concomitant]
     Route: 048
  8. TOLTERODINE TARTRATE [Concomitant]
     Route: 048
  9. MIRTAZAPINE [Concomitant]
     Route: 065
  10. ESOMEPRAZOLE MAGNESIUM [Concomitant]
     Route: 065
  11. PRAVASTATIN SODIUM [Concomitant]
     Route: 065
  12. CLONAZEPAM [Concomitant]
     Route: 065
  13. PENTAZOCINE HYDROCHLORIDE [Concomitant]
     Route: 065

REACTIONS (6)
  - COR PULMONALE ACUTE [None]
  - DEEP VEIN THROMBOSIS [None]
  - DYSPNOEA [None]
  - HAEMANGIOMA OF LIVER [None]
  - OEDEMA PERIPHERAL [None]
  - PULMONARY EMBOLISM [None]
